FAERS Safety Report 8867423 (Version 1)
Quarter: 2012Q4

REPORT INFORMATION
  Report Type: 
  Country: US (occurrence: US)
  Receive Date: 20121025
  Receipt Date: 20121025
  Transmission Date: 20130627
  Serious: No
  Sender: FDA-Public Use
  Company Number: US-AMGEN-USASP2012016527

PATIENT
  Age: 41 Year
  Sex: Female

DRUGS (3)
  1. ENBREL [Suspect]
     Indication: PRODUCT USED FOR UNKNOWN INDICATION
     Dosage: 25 mg, 2 times/wk
     Route: 058
  2. CELEBREX [Concomitant]
     Dosage: 200 mg, UNK
  3. TRAMADOL HCL [Concomitant]
     Dosage: 200 mg, UNK

REACTIONS (2)
  - Influenza [Unknown]
  - Sinusitis [Unknown]
